FAERS Safety Report 12891938 (Version 1)
Quarter: 2016Q4

REPORT INFORMATION
  Report Type: Spontaneous
  Country: US (occurrence: US)
  Receive Date: 20161028
  Receipt Date: 20161028
  Transmission Date: 20170207
  Serious: No
  Sender: FDA-Public Use
  Company Number: US-009507513-1610USA012579

PATIENT
  Age: 18 Year
  Sex: Female
  Weight: 58.96 kg

DRUGS (1)
  1. NEXPLANON [Suspect]
     Active Substance: ETONOGESTREL
     Indication: CONTRACEPTION
     Dosage: 3 YEARS IMPLANT IN LEFT ARM
     Route: 059
     Dates: start: 20150831

REACTIONS (5)
  - Dizziness [Unknown]
  - Device breakage [Not Recovered/Not Resolved]
  - Abdominal distension [Unknown]
  - Malaise [Unknown]
  - Muscle spasms [Unknown]

NARRATIVE: CASE EVENT DATE: 2016
